FAERS Safety Report 4546687-4 (Version None)
Quarter: 2005Q1

REPORT INFORMATION
  Report Type: 
  Country: None (occurrence: None)
  Receive Date: 20050105
  Receipt Date: 20041204
  Transmission Date: 20050727
  Serious: Yes (Hospitalization)
  Sender: FDA-Public Use
  Company Number: UKO04000337

PATIENT
  Age: 22 Year
  Sex: Female

DRUGS (1)
  1. VAPORUB          (CAMPHOR 143.07MG, CEDAR LEAF OIL 20.4 MG, EUCALYPTUS [Suspect]
     Indication: NASOPHARYNGITIS
     Dosage: 1 APPLICATION, ONCE ONLY, TOPICAL
     Route: 061
     Dates: start: 20040915, end: 20040915

REACTIONS (5)
  - ASTHMA [None]
  - DYSPNOEA [None]
  - LOCALISED OEDEMA [None]
  - OEDEMA PERIPHERAL [None]
  - VOMITING [None]
